FAERS Safety Report 4880605-4 (Version None)
Quarter: 2005Q4

REPORT INFORMATION
  Report Type: 
  Country: None (occurrence: None)
  Receive Date: 20051223
  Receipt Date: 20051116
  Transmission Date: 20060501
  Serious: No
  Sender: FDA-Public Use
  Company Number: 05P-163-0317700-00

PATIENT
  Sex: Female

DRUGS (3)
  1. HUMIRA [Suspect]
     Indication: RHEUMATOID ARTHRITIS
     Dosage: 40  MG, 1 IN 2 WK, SUBCUTANEOUS
     Route: 058
     Dates: end: 20050901
  2. RIBAVIRIN [Concomitant]
  3. PEG INTERON [Concomitant]

REACTIONS (3)
  - CONDITION AGGRAVATED [None]
  - RHEUMATOID ARTHRITIS [None]
  - VIRAL LOAD INCREASED [None]
